FAERS Safety Report 7043303-7 (Version None)
Quarter: 2010Q4

REPORT INFORMATION
  Report Type: 
  Country: None (occurrence: None)
  Receive Date: 20101013
  Receipt Date: 20100611
  Transmission Date: 20110411
  Serious: No
  Sender: FDA-Public Use
  Company Number: US-ASTRAZENECA-2010SE27312

PATIENT
  Age: 29747 Day
  Sex: Female
  Weight: 46.3 kg

DRUGS (4)
  1. SYMBICORT [Suspect]
     Dosage: 160/4.5 TWO PUFFS BID
     Route: 055
     Dates: start: 20100609
  2. LISINOPRIL [Concomitant]
  3. AVELOX [Concomitant]
  4. XANAX [Concomitant]

REACTIONS (3)
  - DIZZINESS [None]
  - DYSPNOEA [None]
  - NERVOUSNESS [None]
